FAERS Safety Report 15508460 (Version 1)
Quarter: 2018Q4

REPORT INFORMATION
  Report Type: Spontaneous
  Country: US (occurrence: DE)
  Receive Date: 20181016
  Receipt Date: 20181016
  Transmission Date: 20190205
  Serious: Yes (Other)
  Sender: FDA-Public Use
  Company Number: US-SUNOVION-2018SUN004023

PATIENT

DRUGS (1)
  1. INDACATEROL AND GLYCOPYRROLATE [Suspect]
     Active Substance: GLYCOPYRROLATE\INDACATEROL MALEATE
     Indication: PRODUCT USED FOR UNKNOWN INDICATION
     Dosage: 2 DF, QD
     Route: 055

REACTIONS (10)
  - Sinusitis [Unknown]
  - Joint swelling [Unknown]
  - Muscle spasms [Unknown]
  - Fall [Unknown]
  - Overdose [Unknown]
  - Fatigue [Unknown]
  - Multiple fractures [Unknown]
  - Heart rate increased [Unknown]
  - Sleep disorder [Unknown]
  - Osteoporosis [Unknown]

NARRATIVE: CASE EVENT DATE: 201809
